FAERS Safety Report 7209275-7 (Version None)
Quarter: 2011Q1

REPORT INFORMATION
  Report Type: 
  Country: None (occurrence: None)
  Receive Date: 20110104
  Receipt Date: 20101230
  Transmission Date: 20110831
  Serious: Yes (Hospitalization)
  Sender: FDA-Public Use
  Company Number: B0666944A

PATIENT
  Sex: Male

DRUGS (6)
  1. AUGMENTIN [Suspect]
     Indication: TOOTHACHE
     Dosage: 1UNIT THREE TIMES PER DAY
     Route: 048
     Dates: start: 20100525, end: 20100526
  2. ACETAMINOPHEN AND TRAMADOL HCL [Suspect]
     Indication: TOOTHACHE
     Dosage: 1UNIT FOUR TIMES PER DAY
     Route: 048
     Dates: start: 20100525, end: 20100526
  3. DOLIPRANE [Suspect]
     Indication: TOOTHACHE
     Dosage: 1000MG FOUR TIMES PER DAY
     Route: 048
     Dates: start: 20100525, end: 20100528
  4. TPN [Suspect]
     Indication: PRODUCT USED FOR UNKNOWN INDICATION
     Route: 065
     Dates: start: 20100525, end: 20100527
  5. BIPROFENID [Suspect]
     Indication: TOOTHACHE
     Dosage: 1UNIT TWICE PER DAY
     Route: 048
     Dates: start: 20100525, end: 20100526
  6. IBUPROFEN [Suspect]
     Indication: TOOTHACHE
     Dosage: 1UNIT SINGLE DOSE
     Route: 048
     Dates: start: 20100525, end: 20100525

REACTIONS (10)
  - RASH SCARLATINIFORM [None]
  - LEUKOCYTOSIS [None]
  - RASH MORBILLIFORM [None]
  - SKIN EXFOLIATION [None]
  - EPIDERMAL NECROSIS [None]
  - HYPERTHERMIA [None]
  - DERMATITIS BULLOUS [None]
  - RASH MACULO-PAPULAR [None]
  - TOXIC SKIN ERUPTION [None]
  - OEDEMA PERIPHERAL [None]
